FAERS Safety Report 10477173 (Version 8)
Quarter: 2015Q2

REPORT INFORMATION
  Report Type: Report from Study
  Country: PL (occurrence: PL)
  Receive Date: 20140926
  Receipt Date: 20150416
  Transmission Date: 20150821
  Serious: Yes (Hospitalization)
  Sender: FDA-Public Use
  Company Number: PL-BIOGENIDEC-2014BI069230

PATIENT
  Age: 52 Year
  Sex: Female
  Weight: 75 kg

DRUGS (6)
  1. CLEXANE [Concomitant]
     Active Substance: ENOXAPARIN SODIUM
     Route: 058
     Dates: start: 20140518, end: 20140521
  2. PENTOHEXAL [Concomitant]
     Route: 048
     Dates: start: 20140503, end: 20140520
  3. VESSEL DUE F [Concomitant]
     Active Substance: SULODEXIDE
     Indication: VARICOSE VEIN
     Route: 048
     Dates: start: 20140503, end: 20140520
  4. QLAIRA [Concomitant]
     Active Substance: DIENOGEST\ESTRADIOL VALERATE
     Indication: CONTRACEPTION
     Route: 048
     Dates: start: 20110522
  5. IBUPROM [Concomitant]
     Active Substance: IBUPROFEN
     Indication: HEADACHE
     Route: 048
     Dates: start: 20140516, end: 20140516
  6. BIIB017 [Suspect]
     Active Substance: PEGINTERFERON BETA-1A
     Indication: MULTIPLE SCLEROSIS RELAPSE
     Route: 058
     Dates: start: 20120615

REACTIONS (2)
  - Osteoarthritis [Recovered/Resolved]
  - Patellofemoral pain syndrome [Recovered/Resolved]

NARRATIVE: CASE EVENT DATE: 20140521
